FAERS Safety Report 5899314-8 (Version None)
Quarter: 2008Q3

REPORT INFORMATION
  Report Type: 
  Country: None (occurrence: None)
  Receive Date: 20080909
  Receipt Date: 20080212
  Transmission Date: 20090109
  Serious: Yes (Other)
  Sender: FDA-Public Use
  Company Number: US-WYE-H02623208

PATIENT
  Sex: Female

DRUGS (1)
  1. ADVIL [Suspect]
     Indication: ARTHRITIS
     Dosage: AN UNKNOWN DOSE ^QUITE OFTEN^, ORAL
     Route: 048

REACTIONS (1)
  - CEREBROVASCULAR ACCIDENT [None]
